FAERS Safety Report 9594735 (Version 1)
Quarter: 2013Q4

REPORT INFORMATION
  Report Type: Spontaneous
  Country: US (occurrence: US)
  Receive Date: 20131004
  Receipt Date: 20131004
  Transmission Date: 20140711
  Serious: No
  Sender: FDA-Public Use
  Company Number: US-PURDUE-USA-2012-0091478

PATIENT
  Age: 31 Year
  Sex: Female

DRUGS (5)
  1. BUTRANS [Suspect]
     Indication: PAIN
     Dosage: 10 MCG/HR, UNK
     Route: 062
     Dates: start: 201208
  2. BUTRANS [Suspect]
     Dosage: 10 MCG/HR, UNK
     Route: 062
     Dates: start: 201207, end: 201208
  3. KLONOPIN [Concomitant]
     Indication: SLEEP DISORDER
     Dosage: 3 MG, AM
     Route: 048
  4. TOPAMAX [Concomitant]
     Indication: BIPOLAR DISORDER
     Dosage: 500 MG, DAILY
     Route: 048
  5. LAMICTAL [Concomitant]
     Indication: BIPOLAR DISORDER
     Dosage: 200 MG, DAILY
     Route: 048

REACTIONS (4)
  - Hyporeflexia [Not Recovered/Not Resolved]
  - Somnambulism [Not Recovered/Not Resolved]
  - Feeling abnormal [Not Recovered/Not Resolved]
  - Somnolence [Not Recovered/Not Resolved]
